FAERS Safety Report 6470439-1 (Version None)
Quarter: 2009Q4

REPORT INFORMATION
  Report Type: 
  Country: None (occurrence: None)
  Receive Date: 20091201
  Receipt Date: 20091117
  Transmission Date: 20100525
  Serious: Yes (Hospitalization)
  Sender: FDA-Public Use
  Company Number: A-CH2009-30396

PATIENT
  Age: 45 Year
  Sex: Female

DRUGS (3)
  1. TRACLEER [Suspect]
     Indication: PULMONARY ARTERIAL HYPERTENSION
     Dosage: ORAL
     Route: 048
     Dates: start: 20070801
  2. SILDENAFIL CITRATE [Suspect]
     Dates: start: 20080201, end: 20080401
  3. DIURETICS [Concomitant]

REACTIONS (8)
  - BRAIN NATRIURETIC PEPTIDE INCREASED [None]
  - CONDITION AGGRAVATED [None]
  - HAEMODYNAMIC INSTABILITY [None]
  - LUNG TRANSPLANT [None]
  - PLEURAL EFFUSION [None]
  - PULMONARY HYPERTENSION [None]
  - PULMONARY OEDEMA [None]
  - PULMONARY VENO-OCCLUSIVE DISEASE [None]
